FAERS Safety Report 5633182-4 (Version None)
Quarter: 2008Q1

REPORT INFORMATION
  Report Type: 
  Country: None (occurrence: None)
  Receive Date: 20080215
  Receipt Date: 20080211
  Transmission Date: 20080703
  Serious: Yes (Hospitalization)
  Sender: FDA-Public Use
  Company Number: 2008SP000456

PATIENT
  Age: 74 Year
  Sex: Female

DRUGS (8)
  1. TEMODAL [Suspect]
     Indication: GLIOBLASTOMA
     Dosage: 240 MG;QD;PO
     Route: 048
     Dates: start: 20070823, end: 20080115
  2. ACETAMINOPHEN [Suspect]
     Indication: DRUG USE FOR UNKNOWN INDICATION
     Dates: end: 20071011
  3. NOROXIN [Suspect]
     Indication: DRUG USE FOR UNKNOWN INDICATION
     Dates: start: 20071005, end: 20071010
  4. OMEPRAZOLE [Suspect]
     Indication: DRUG USE FOR UNKNOWN INDICATION
     Dosage: 20 MG; 10 MG;
     Dates: end: 20071011
  5. OMEPRAZOLE [Suspect]
     Indication: DRUG USE FOR UNKNOWN INDICATION
     Dosage: 20 MG; 10 MG;
     Dates: start: 20071011, end: 20080115
  6. AMOXICILLIN [Suspect]
     Indication: DRUG USE FOR UNKNOWN INDICATION
     Dates: start: 20070901, end: 20070910
  7. PROZAC [Suspect]
     Indication: DRUG USE FOR UNKNOWN INDICATION
     Dates: start: 20070907, end: 20071011
  8. ACETAMINOPHEN W/ PROPOXYPHENE HCL [Suspect]
     Indication: DRUG USE FOR UNKNOWN INDICATION
     Dates: start: 20070903, end: 20070918

REACTIONS (6)
  - ABDOMINAL PAIN [None]
  - BRONCHIAL OBSTRUCTION [None]
  - CHOLESTASIS [None]
  - CONSTIPATION [None]
  - CYTOLYTIC HEPATITIS [None]
  - ILL-DEFINED DISORDER [None]
